FAERS Safety Report 5782551-0 (Version None)
Quarter: 2008Q2

REPORT INFORMATION
  Report Type: 
  Country: None (occurrence: None)
  Receive Date: 20080623
  Receipt Date: 20080611
  Transmission Date: 20081010
  Serious: Yes (Other)
  Sender: FDA-Public Use
  Company Number: CA-PFIZER INC-2008049374

PATIENT
  Age: 49 Year
  Sex: Male
  Weight: 81.8 kg

DRUGS (2)
  1. CHANTIX [Suspect]
  2. AMITRIPTYLINE HCL [Concomitant]

REACTIONS (9)
  - ACTIVITIES OF DAILY LIVING IMPAIRED [None]
  - AGGRESSION [None]
  - CRYING [None]
  - DYSARTHRIA [None]
  - FEELING ABNORMAL [None]
  - FEELING OF DESPAIR [None]
  - IMPAIRED DRIVING ABILITY [None]
  - SUICIDAL IDEATION [None]
  - TEMPERATURE INTOLERANCE [None]
